FAERS Safety Report 22799431 (Version 9)
Quarter: 2023Q4

REPORT INFORMATION
  Report Type: Spontaneous
  Country: US (occurrence: US)
  Receive Date: 20230808
  Receipt Date: 20231219
  Transmission Date: 20240110
  Serious: No
  Sender: FDA-Public Use
  Company Number: US-PFIZER INC-202300270803

PATIENT
  Age: 69 Year
  Sex: Male

DRUGS (4)
  1. BRAFTOVI [Suspect]
     Active Substance: ENCORAFENIB
     Indication: Mucinous adenocarcinoma of appendix
     Dosage: 300 MG, DAILY (TAKE 4 TABS (300MG) BY MOUTH DAILY, 30-DAY SUPPLY)
     Route: 048
     Dates: start: 2022
  2. BRAFTOVI [Suspect]
     Active Substance: ENCORAFENIB
     Indication: Gastrointestinal cancer metastatic
     Dosage: 75 MG
     Route: 048
     Dates: start: 2022
  3. MEKTOVI [Concomitant]
     Active Substance: BINIMETINIB
     Indication: Mucinous adenocarcinoma of appendix
     Dosage: 45 MG, 2X/DAY (TAKE 15 MG X3 (TAKE 3 TABS (45 MG) BY MOUTH TWICE DAILY))
     Route: 048
  4. MEKTOVI [Concomitant]
     Active Substance: BINIMETINIB
     Indication: Gastrointestinal cancer metastatic

REACTIONS (2)
  - Rash [Unknown]
  - Off label use [Unknown]
